FAERS Safety Report 25085253 (Version 1)
Quarter: 2025Q1

REPORT INFORMATION
  Report Type: Report from Study
  Country: ZA (occurrence: ZA)
  Receive Date: 20250317
  Receipt Date: 20250317
  Transmission Date: 20250408
  Serious: Yes (Hospitalization)
  Sender: ALEXION PHARMACEUTICALS
  Company Number: ZA-AstraZeneca-CH-00825598A

PATIENT
  Age: 84 Year

DRUGS (9)
  1. DAPAGLIFLOZIN [Suspect]
     Active Substance: DAPAGLIFLOZIN
     Indication: Diabetes mellitus
  2. Amloc [Concomitant]
     Indication: Hypertension
  3. SIMVASTATIN [Concomitant]
     Active Substance: SIMVASTATIN
     Indication: Blood cholesterol
  4. GABAPENTIN [Concomitant]
     Active Substance: GABAPENTIN
     Indication: Epilepsy
  5. Pantocid [Concomitant]
     Indication: Ulcer
  6. TEGRETOL XR [Concomitant]
     Active Substance: CARBAMAZEPINE
     Indication: Epilepsy
  7. Uromax [Concomitant]
     Indication: Prostatomegaly
  8. GLUCOPHAGE [Concomitant]
     Active Substance: METFORMIN HYDROCHLORIDE
     Indication: Diabetes mellitus
  9. POTASSIUM CHLORIDE [Concomitant]
     Active Substance: POTASSIUM CHLORIDE
     Indication: Hypokalaemia

REACTIONS (1)
  - Illness [Unknown]
